FAERS Safety Report 7830261-8 (Version None)
Quarter: 2011Q4

REPORT INFORMATION
  Report Type: 
  Country: None (occurrence: None)
  Receive Date: 20111021
  Receipt Date: 20111010
  Transmission Date: 20120403
  Serious: Yes (Hospitalization, Other)
  Sender: FDA-Public Use
  Company Number: IN-SANOFI-AVENTIS-2011SA066104

PATIENT
  Age: 40 Year
  Sex: Male

DRUGS (6)
  1. LEFLUNOMIDE [Suspect]
     Route: 065
  2. PREDNISOLONE [Concomitant]
  3. METHOTREXATE [Concomitant]
  4. METHOTREXATE [Concomitant]
  5. LEFLUNOMIDE [Suspect]
     Route: 065
  6. PREDNISOLONE [Concomitant]

REACTIONS (12)
  - DRUG RASH WITH EOSINOPHILIA AND SYSTEMIC SYMPTOMS [None]
  - RASH [None]
  - PYREXIA [None]
  - DERMATITIS EXFOLIATIVE [None]
  - EOSINOPHILIA [None]
  - JAUNDICE [None]
  - HEPATOTOXICITY [None]
  - MOUTH ULCERATION [None]
  - BLOOD BILIRUBIN INCREASED [None]
  - ERYTHEMA [None]
  - ALANINE AMINOTRANSFERASE INCREASED [None]
  - ASPARTATE AMINOTRANSFERASE INCREASED [None]
